FAERS Safety Report 16230803 (Version 2)
Quarter: 2019Q2

REPORT INFORMATION
  Report Type: Spontaneous
  Country: DE (occurrence: DE)
  Receive Date: 20190423
  Receipt Date: 20190509
  Transmission Date: 20190711
  Serious: Yes (Other)
  Sender: FDA-Public Use
  Company Number: DE-BAUSCH-BL-2019-010102

PATIENT
  Sex: Female

DRUGS (3)
  1. KYNTHEUM [Suspect]
     Active Substance: BRODALUMAB
     Indication: PSORIASIS
     Dosage: WEEKLY, FIRST INJECTION
     Route: 058
  2. KYNTHEUM [Suspect]
     Active Substance: BRODALUMAB
     Dosage: WEEKLY, SECOND INJECTION, THIRD INJECTION PLANNED ON 01/APR/2019 BIWEEKLY (2 IN 1 WEEK)
     Route: 058
     Dates: start: 20190305
  3. BARACLUDE [Concomitant]
     Active Substance: ENTECAVIR
     Indication: HEPATITIS B

REACTIONS (6)
  - Vomiting [Recovered/Resolved]
  - Hepatomegaly [Recovering/Resolving]
  - Abdominal discomfort [Unknown]
  - Rebound psoriasis [Not Recovered/Not Resolved]
  - Nausea [Recovered/Resolved]
  - Headache [Recovered/Resolved]

NARRATIVE: CASE EVENT DATE: 2019
